FAERS Safety Report 4620819-1 (Version None)
Quarter: 2005Q1

REPORT INFORMATION
  Report Type: 
  Country: None (occurrence: None)
  Receive Date: 20050325
  Receipt Date: 20050316
  Transmission Date: 20050727
  Serious: Yes (Other)
  Sender: FDA-Public Use
  Company Number: USA-2004-0014945

PATIENT
  Age: 43 Year
  Sex: Male

DRUGS (1)
  1. OXYCONTIN [Suspect]
     Dosage: MG
     Dates: end: 20031128

REACTIONS (10)
  - ATTENTION-SEEKING BEHAVIOUR [None]
  - CONDITION AGGRAVATED [None]
  - DEPRESSION [None]
  - DRUG DEPENDENCE [None]
  - INTENTIONAL MISUSE [None]
  - IRRITABILITY [None]
  - MEDICATION ERROR [None]
  - MEMORY IMPAIRMENT [None]
  - MOOD SWINGS [None]
  - SUICIDE ATTEMPT [None]
